FAERS Safety Report 15334783 (Version 1)
Quarter: 2018Q3

REPORT INFORMATION
  Report Type: Spontaneous
  Country: GB (occurrence: GB)
  Receive Date: 20180830
  Receipt Date: 20180830
  Transmission Date: 20181010
  Serious: Yes (Other)
  Sender: FDA-Public Use
  Company Number: GB-TEVA-2018-GB-950029

PATIENT
  Age: 47 Year
  Sex: Female
  Weight: 90.71 kg

DRUGS (4)
  1. SUMATRIPTAN. [Concomitant]
     Active Substance: SUMATRIPTAN
     Route: 065
  2. NORETHINDRONE. [Suspect]
     Active Substance: NORETHINDRONE
     Indication: MENSTRUAL CYCLE MANAGEMENT
     Dosage: 15 MILLIGRAM DAILY;
     Route: 048
     Dates: start: 20180802, end: 20180804
  3. PARACETAMOL [Concomitant]
     Active Substance: ACETAMINOPHEN
     Route: 065
  4. KALMS [Concomitant]
     Active Substance: HERBALS
     Route: 065

REACTIONS (2)
  - Joint swelling [Recovered/Resolved]
  - Peripheral swelling [Recovered/Resolved]

NARRATIVE: CASE EVENT DATE: 20180803
